FAERS Safety Report 10465108 (Version 1)
Quarter: 2014Q3

REPORT INFORMATION
  Report Type: Spontaneous
  Country: PL (occurrence: PL)
  Receive Date: 20140919
  Receipt Date: 20140919
  Transmission Date: 20150326
  Serious: Yes (Death, Hospitalization)
  Sender: FDA-Public Use
  Company Number: PL-MYLANLABS-2014M1004723

PATIENT

DRUGS (3)
  1. METFORMIN [Suspect]
     Active Substance: METFORMIN HYDROCHLORIDE
     Indication: OFF LABEL USE
  2. KETOPROFEN. [Suspect]
     Active Substance: KETOPROFEN
     Indication: COMPLETED SUICIDE
     Route: 048
  3. METFORMIN [Suspect]
     Active Substance: METFORMIN HYDROCHLORIDE
     Indication: COMPLETED SUICIDE
     Route: 048

REACTIONS (13)
  - Overdose [Fatal]
  - Respiratory failure [Fatal]
  - Hepatorenal syndrome [Fatal]
  - International normalised ratio increased [None]
  - Circulatory collapse [Fatal]
  - Metabolic acidosis [Unknown]
  - Liver injury [None]
  - Convulsion [Unknown]
  - Amylase increased [None]
  - Toxicity to various agents [Fatal]
  - Completed suicide [Fatal]
  - Hypoglycaemia [Unknown]
  - Pancreatic injury [None]
